FAERS Safety Report 9226734 (Version 1)
Quarter: 2013Q2

REPORT INFORMATION
  Report Type: Spontaneous
  Country: TR (occurrence: None)
  Receive Date: 20130410
  Receipt Date: 20130410
  Transmission Date: 20140414
  Serious: Yes (Hospitalization)
  Sender: FDA-Public Use
  Company Number: FK201301095

PATIENT
  Age: 48 Year
  Sex: Male

DRUGS (5)
  1. FLUOROURACIL [Suspect]
     Indication: METASTATIC GASTRIC CANCER
  2. LEUCOVORIN CALCIUM [Suspect]
     Indication: METASTATIC GASTRIC CANCER
  3. DOCETAXEL [Concomitant]
  4. CISPLATIN [Concomitant]
  5. IRINOTECAN [Concomitant]

REACTIONS (6)
  - Stress cardiomyopathy [None]
  - Peritonitis [None]
  - Tachycardia [None]
  - Breath sounds abnormal [None]
  - Left ventricular dysfunction [None]
  - Ventricular fibrillation [None]
